FAERS Safety Report 9265053 (Version 2)
Quarter: 2013Q2

REPORT INFORMATION
  Report Type: Spontaneous
  Country: US (occurrence: US)
  Receive Date: 20130501
  Receipt Date: 20130604
  Transmission Date: 20140414
  Serious: No
  Sender: FDA-Public Use
  Company Number: US-ASTRAZENECA-2013SE24889

PATIENT
  Age: 62 Year
  Sex: Female

DRUGS (5)
  1. SYMBICORT [Suspect]
     Indication: ASTHMA
     Dosage: 80-4.5 MCG, ONE INHALATION TWICE DAILY
     Route: 055
     Dates: start: 201211
  2. SYMBICORT [Suspect]
     Indication: ASTHMA
     Dosage: 80/4.5, TWO INHALATIONS BID
     Route: 055
  3. SYMBICORT [Suspect]
     Indication: ASTHMA
     Dosage: ONE INHALATION IN THE MORNING AND ONE INHALATION IN THE EVENING
     Route: 055
     Dates: start: 2013
  4. SYMBICORT [Suspect]
     Indication: ASTHMA
     Dosage: 80/4.5, TWO INHALATIONS BID
     Route: 055
  5. VENTOLIN [Concomitant]
     Indication: ASTHMA
     Dosage: PRN
     Route: 055

REACTIONS (4)
  - Asthma [Recovered/Resolved]
  - Off label use [Not Recovered/Not Resolved]
  - Circumstance or information capable of leading to medication error [Unknown]
  - Intentional drug misuse [Recovered/Resolved]
